FAERS Safety Report 16468352 (Version 1)
Quarter: 2019Q2

REPORT INFORMATION
  Report Type: Spontaneous
  Country: ES (occurrence: ES)
  Receive Date: 20190624
  Receipt Date: 20190624
  Transmission Date: 20190711
  Serious: Yes (Hospitalization)
  Sender: FDA-Public Use
  Company Number: ES-ZYDUS-037834

PATIENT
  Age: 12 Year
  Sex: Female

DRUGS (4)
  1. METRONIDAZOLE. [Suspect]
     Active Substance: METRONIDAZOLE
     Indication: SUBDURAL EMPYEMA
     Route: 048
     Dates: start: 20190213, end: 20190508
  2. OMEPRAZOLE. [Suspect]
     Active Substance: OMEPRAZOLE
     Indication: PROPHYLAXIS
     Route: 048
     Dates: start: 20190131
  3. LACOSAMIDE. [Suspect]
     Active Substance: LACOSAMIDE
     Indication: SUBDURAL EMPYEMA
     Route: 048
     Dates: start: 20190213
  4. ACETAZOLAMIDE. [Concomitant]
     Active Substance: ACETAZOLAMIDE
     Indication: SUBDURAL EMPYEMA
     Route: 048
     Dates: start: 20170215

REACTIONS (2)
  - Vomiting [Recovered/Resolved]
  - Dysaesthesia [Unknown]

NARRATIVE: CASE EVENT DATE: 20190506
